FAERS Safety Report 5614884-2 (Version None)
Quarter: 2008Q1

REPORT INFORMATION
  Report Type: 
  Country: None (occurrence: None)
  Receive Date: 20080131
  Receipt Date: 20071102
  Transmission Date: 20080703
  Serious: Yes (Hospitalization)
  Sender: FDA-Public Use
  Company Number: 2008VX000168

PATIENT
  Age: 64 Year
  Sex: Male

DRUGS (5)
  1. PERMAX [Suspect]
     Indication: PARKINSON'S DISEASE
     Dosage: 1.5 MG;TID;PO
     Route: 048
     Dates: start: 20040923
  2. DIFRAREL [Concomitant]
  3. MODOPAR [Concomitant]
  4. COMTAN [Concomitant]
  5. B12 ^RECIP^ [Concomitant]

REACTIONS (6)
  - AORTIC VALVE INCOMPETENCE [None]
  - CARDIAC MURMUR [None]
  - LEFT VENTRICULAR HYPERTROPHY [None]
  - MITRAL VALVE INCOMPETENCE [None]
  - PULMONARY VALVE INCOMPETENCE [None]
  - TRICUSPID VALVE INCOMPETENCE [None]
